FAERS Safety Report 11584769 (Version 1)
Quarter: 2015Q4

REPORT INFORMATION
  Report Type: Spontaneous
  Country: US (occurrence: US)
  Receive Date: 20151001
  Receipt Date: 20151001
  Transmission Date: 20160304
  Serious: No
  Sender: FDA-Public Use
  Company Number: US-JNJFOC-20150824213

PATIENT
  Sex: Male
  Weight: 109.77 kg

DRUGS (2)
  1. HALDOL [Suspect]
     Active Substance: HALOPERIDOL
     Indication: DEPRESSION
     Route: 048
  2. HALDOL [Suspect]
     Active Substance: HALOPERIDOL
     Indication: DISTURBANCE IN ATTENTION
     Route: 048

REACTIONS (2)
  - Weight increased [Not Recovered/Not Resolved]
  - Depression [Unknown]
